FAERS Safety Report 16707990 (Version 2)
Quarter: 2019Q3

REPORT INFORMATION
  Report Type: Spontaneous
  Country: US (occurrence: US)
  Receive Date: 20190815
  Receipt Date: 20190916
  Transmission Date: 20191004
  Serious: Yes (Death, Other)
  Sender: FDA-Public Use
  Company Number: US-PRINSTON PHARMACEUTICAL INC.-2019PRN00740

PATIENT
  Sex: Female

DRUGS (6)
  1. RISPERDAL [Suspect]
     Active Substance: RISPERIDONE
     Dosage: 2 TABLETS
  2. RISPERIDONE. [Suspect]
     Active Substance: RISPERIDONE
     Dosage: 0.1 MG, 2X/DAY, ^TOOK AWAY THE NOON PILL^
  3. RISPERIDONE. [Suspect]
     Active Substance: RISPERIDONE
     Dosage: 0.1 MG, 2X/DAY
     Dates: start: 2006
  4. RISPERIDONE. [Suspect]
     Active Substance: RISPERIDONE
     Dosage: 0.1 MG, 3X/DAY
  5. RISPERDAL [Suspect]
     Active Substance: RISPERIDONE
     Dosage: 3 TABLETS
  6. RISPERIDONE PATCH [Suspect]
     Active Substance: RISPERIDONE

REACTIONS (6)
  - Somnolence [Recovering/Resolving]
  - Death [Fatal]
  - Unresponsive to stimuli [Not Recovered/Not Resolved]
  - Decreased appetite [Unknown]
  - Weight increased [Not Recovered/Not Resolved]
  - Dementia [Unknown]

NARRATIVE: CASE EVENT DATE: 201612
